FAERS Safety Report 7272858-2 (Version None)
Quarter: 2011Q1

REPORT INFORMATION
  Report Type: 
  Country: None (occurrence: None)
  Receive Date: 20110126
  Receipt Date: 20110112
  Transmission Date: 20110831
  Serious: Yes (Hospitalization)
  Sender: FDA-Public Use
  Company Number: 025162

PATIENT
  Sex: Female

DRUGS (7)
  1. PREDNISOLONE [Concomitant]
  2. METHOTEEXATE [Concomitant]
  3. ALENDRONATE SODIUM [Concomitant]
  4. ZALTOPROFEN [Concomitant]
  5. CERTOLIZUMAB PEGOL (CERTOLIZUMAB PEGOL) [Suspect]
     Indication: RHEUMATOID ARTHRITIS
     Dosage: SUBCUTANEOUS
     Route: 058
     Dates: start: 20091119, end: 20101228
  6. FAMOTIDINE [Concomitant]
  7. FOLIC ACID [Concomitant]

REACTIONS (7)
  - ALTERED STATE OF CONSCIOUSNESS [None]
  - CEREBRAL HAEMORRHAGE [None]
  - BLOOD PRESSURE INCREASED [None]
  - ACTIVATED PARTIAL THROMBOPLASTIN TIME SHORTENED [None]
  - HAEMOGLOBIN DECREASED [None]
  - VOMITING [None]
  - PAIN IN EXTREMITY [None]
